FAERS Safety Report 9514685 (Version 1)
Quarter: 2013Q3

REPORT INFORMATION
  Report Type: Spontaneous
  Country: US (occurrence: US)
  Receive Date: 20130911
  Receipt Date: 20130911
  Transmission Date: 20140515
  Serious: Yes (Hospitalization)
  Sender: FDA-Public Use
  Company Number: US-MERCK-1309USA003868

PATIENT
  Age: 65 Year
  Sex: Male

DRUGS (7)
  1. ZETIA [Suspect]
     Dosage: 1 DF, QD
     Route: 048
  2. FINASTERIDE [Suspect]
     Dosage: UNK
     Route: 048
     Dates: end: 20130611
  3. PLAVIX [Concomitant]
  4. PRAVASTATIN [Concomitant]
  5. MYRBETRIG [Concomitant]
  6. SYNTHROID [Concomitant]
  7. ASPIRIN [Concomitant]

REACTIONS (4)
  - Coronary arterial stent insertion [Unknown]
  - Haematuria [Recovered/Resolved]
  - Haematuria [Recovered/Resolved]
  - Prostatic specific antigen increased [Unknown]
